FAERS Safety Report 8592565-3 (Version None)
Quarter: 2012Q3

REPORT INFORMATION
  Report Type: 
  Country: None (occurrence: None)
  Receive Date: 20120814
  Receipt Date: 20120802
  Transmission Date: 20120928
  Serious: Yes (Hospitalization, Other)
  Sender: FDA-Public Use
  Company Number: GB-TEVA-348238ISR

PATIENT
  Age: 69 Year
  Sex: Female
  Weight: 64 kg

DRUGS (18)
  1. LORAZEPAM [Suspect]
     Indication: PRODUCT USED FOR UNKNOWN INDICATION
     Dosage: 3 MILLIGRAM DAILY;
     Route: 048
     Dates: start: 20120329, end: 20120523
  2. LANSOPRAZOLE [Concomitant]
     Dosage: 30 MILLIGRAM DAILY;
     Dates: start: 20080627
  3. METOCLOPRAMIDE [Suspect]
     Indication: PRODUCT USED FOR UNKNOWN INDICATION
     Route: 048
     Dates: start: 20080806, end: 20110901
  4. MIRTAZAPINE [Suspect]
     Indication: PRODUCT USED FOR UNKNOWN INDICATION
     Dosage: 30 MILLIGRAM DAILY;
     Dates: start: 20120501
  5. PAROXETINE HCL [Suspect]
     Indication: DEPRESSION
     Route: 048
     Dates: start: 19970707, end: 20111206
  6. PAROXETINE HCL [Suspect]
     Dosage: .5 TABLET DAILY;
     Route: 048
     Dates: start: 20010201, end: 20100501
  7. PAROXETINE HCL [Suspect]
     Dosage: 40 MILLIGRAM DAILY;
     Route: 048
     Dates: start: 20111013, end: 20111206
  8. TETRABENAZINE [Suspect]
     Indication: PRODUCT USED FOR UNKNOWN INDICATION
     Dosage: 4.5 MILLIGRAM DAILY;
     Route: 048
     Dates: start: 20111128, end: 20120320
  9. ATORVASTATIN [Concomitant]
     Dosage: 40 MILLIGRAM DAILY;
     Dates: start: 20031114
  10. ACRIVASTINE [Concomitant]
     Dosage: 24 MILLIGRAM DAILY;
     Dates: start: 19950728
  11. BECONASE [Concomitant]
     Dates: start: 20071120
  12. MIRTAZAPINE [Suspect]
     Dosage: 15 MILLIGRAM DAILY;
     Route: 065
  13. BENDROFLUMETHIAZIDE [Concomitant]
     Dosage: 2.5 MILLIGRAM DAILY;
     Dates: start: 20050420
  14. LORAZEPAM [Suspect]
     Dosage: 1.5 MILLIGRAM DAILY;
     Dates: start: 20110101
  15. PROPRANOLOL [Suspect]
     Indication: PRODUCT USED FOR UNKNOWN INDICATION
     Dosage: 60 MILLIGRAM DAILY;
     Route: 048
     Dates: start: 20120501
  16. FENOFIBRATE [Concomitant]
     Dosage: 160 MILLIGRAM DAILY;
     Dates: start: 20030520
  17. PAROXETINE HCL [Suspect]
     Dosage: 20 MILLIGRAM DAILY;
     Route: 048
     Dates: start: 20100701, end: 20110901
  18. RAMIPRIL [Concomitant]
     Dosage: 2.5 MILLIGRAM DAILY;
     Dates: start: 20080201

REACTIONS (5)
  - HALLUCINATION [None]
  - EATING DISORDER [None]
  - MUSCLE CONTRACTIONS INVOLUNTARY [None]
  - AKATHISIA [None]
  - FALL [None]
